FAERS Safety Report 22091522 (Version 2)
Quarter: 2023Q2

REPORT INFORMATION
  Report Type: Spontaneous
  Country: FR (occurrence: None)
  Receive Date: 20230314
  Receipt Date: 20230403
  Transmission Date: 20230722
  Serious: Yes (Disabling, Other)
  Sender: FDA-Public Use
  Company Number: FR-Merck KGaA-9011636

PATIENT
  Age: 65 Year
  Sex: Male
  Weight: 93 kg

DRUGS (9)
  1. LEVOTHYROXINE [Suspect]
     Active Substance: LEVOTHYROXINE
     Indication: Post procedural hypothyroidism
     Dosage: 1 TABLET OF 100 MCG AND HALF TABLET OF 25 MCG
     Dates: start: 201707, end: 20170822
  2. DOLIPRANE [Concomitant]
     Active Substance: ACETAMINOPHEN
     Indication: Analgesic therapy
     Dosage: 1 TO 3 TIMES A DAY
  3. ERGOCALCIFEROL [Concomitant]
     Active Substance: ERGOCALCIFEROL
     Indication: Product used for unknown indication
     Dosage: FOR UNSPECIFIED DEFICIENCY
  4. PERINDOPRIL ERBUMINE [Concomitant]
     Active Substance: PERINDOPRIL ERBUMINE
     Indication: Hypertension
  5. LANSOPRAZOLE [Concomitant]
     Active Substance: LANSOPRAZOLE
     Indication: Hiatus hernia
  6. POLYETHYLENE GLYCOL 4000 [Concomitant]
     Active Substance: POLYETHYLENE GLYCOL 4000
     Indication: Constipation
     Dosage: SACHET THE EVENING,
  7. CHOLECALCIFEROL [Concomitant]
     Active Substance: CHOLECALCIFEROL
     Indication: Vitamin D deficiency
  8. PARAPSYLLIUM [PARAFFIN, LIQUID;PLANTAGO SPP. SEED] [Concomitant]
     Indication: Product used for unknown indication
  9. PIVALONE 1 PER CENT [Concomitant]
     Indication: Product used for unknown indication

REACTIONS (19)
  - Osteoarthritis [Unknown]
  - Laryngectomy [Unknown]
  - Deafness [Unknown]
  - Fatigue [Recovered/Resolved]
  - Asthenia [Unknown]
  - Libido decreased [Recovered/Resolved]
  - Dyspepsia [Unknown]
  - Abdominal pain upper [Unknown]
  - Tri-iodothyronine decreased [Unknown]
  - Blood thyroid stimulating hormone increased [Recovered/Resolved]
  - Gastrointestinal disorder [Unknown]
  - Weight increased [Recovered/Resolved]
  - Constipation [Recovered/Resolved]
  - Dyspnoea [Unknown]
  - Joint swelling [Unknown]
  - Tinnitus [Unknown]
  - Tendonitis [Unknown]
  - Extrasystoles [Unknown]
  - Hyperhidrosis [Recovered/Resolved]

NARRATIVE: CASE EVENT DATE: 20170701
